FAERS Safety Report 10688467 (Version 2)
Quarter: 2017Q2

REPORT INFORMATION
  Report Type: Spontaneous
  Country: US (occurrence: US)
  Receive Date: 20150102
  Receipt Date: 20170612
  Transmission Date: 20170829
  Serious: Yes (Other)
  Sender: FDA-Public Use
  Company Number: US-LUNDBECK-DKLU1106384

PATIENT
  Sex: Male

DRUGS (3)
  1. NORTHERA [Suspect]
     Active Substance: DROXIDOPA
     Indication: AUTONOMIC FAILURE SYNDROME
     Route: 048
     Dates: start: 20141120
  2. NORTHERA [Suspect]
     Active Substance: DROXIDOPA
     Indication: DIZZINESS
     Route: 048
     Dates: start: 2014
  3. NORTHERA [Suspect]
     Active Substance: DROXIDOPA
     Indication: SYNCOPE
     Route: 048

REACTIONS (11)
  - Balance disorder [Unknown]
  - Cellulitis [Unknown]
  - Blood creatinine increased [Unknown]
  - Hypertension [Unknown]
  - Functional gastrointestinal disorder [Unknown]
  - Headache [Unknown]
  - Supine hypertension [Unknown]
  - Fatigue [Unknown]
  - Wheelchair user [Unknown]
  - Dizziness [Unknown]
  - Drug administration error [Unknown]
